FAERS Safety Report 7777039-1 (Version None)
Quarter: 2011Q3

REPORT INFORMATION
  Report Type: 
  Country: None (occurrence: None)
  Receive Date: 20110926
  Receipt Date: 20110926
  Transmission Date: 20111222
  Serious: Yes (Other)
  Sender: FDA-Public Use
  Company Number: None

PATIENT
  Age: 39 Year
  Sex: Male
  Weight: 79.378 kg

DRUGS (1)
  1. OXYCONTIN [Suspect]

REACTIONS (5)
  - PRODUCT SUBSTITUTION ISSUE [None]
  - NO THERAPEUTIC RESPONSE [None]
  - INCORRECT DOSE ADMINISTERED [None]
  - ABDOMINAL DISCOMFORT [None]
  - HEADACHE [None]
